FAERS Safety Report 11353963 (Version 1)
Quarter: 2015Q3

REPORT INFORMATION
  Report Type: Spontaneous
  Country: US (occurrence: US)
  Receive Date: 20150807
  Receipt Date: 20150807
  Transmission Date: 20151125
  Serious: No
  Sender: FDA-Public Use
  Company Number: US-JNJFOC-20140708251

PATIENT
  Age: 56 Year
  Sex: Female
  Weight: 52.16 kg

DRUGS (1)
  1. MENS ROGAINE EXTRA STRENGTH [Suspect]
     Active Substance: MINOXIDIL
     Indication: HAIR GROWTH ABNORMAL
     Dosage: HALF A CAP
     Route: 061

REACTIONS (4)
  - Product physical issue [Unknown]
  - Therapeutic response unexpected [Unknown]
  - Wrong patient received medication [Unknown]
  - Hair texture abnormal [Unknown]
